FAERS Safety Report 7337230-5 (Version None)
Quarter: 2011Q1

REPORT INFORMATION
  Report Type: 
  Country: None (occurrence: None)
  Receive Date: 20110308
  Receipt Date: 20110223
  Transmission Date: 20110831
  Serious: Yes (Other)
  Sender: FDA-Public Use
  Company Number: PHHY2011FR16360

PATIENT
  Sex: Male

DRUGS (1)
  1. TEGRETOL [Suspect]
     Indication: CONVULSION
     Dosage: 300 MG, QD
     Route: 048
     Dates: start: 20100901, end: 20101101

REACTIONS (2)
  - COLITIS [None]
  - DIARRHOEA [None]
